FAERS Safety Report 16168872 (Version 1)
Quarter: 2019Q2

REPORT INFORMATION
  Report Type: Spontaneous
  Country: US (occurrence: US)
  Receive Date: 20190405
  Receipt Date: 20190405
  Transmission Date: 20190711
  Serious: Yes (Disabling)
  Sender: FDA-Public Use
  Company Number: None

PATIENT
  Age: 58 Year
  Sex: Male
  Weight: 99 kg

DRUGS (1)
  1. BLISTEX MEDICATED LIP BALM NOS [Suspect]
     Active Substance: DIMETHICONE\OCTINOXATE\OCTISALATE OR DIMETHICONE\OXYBENZONE\PADIMATE O
     Indication: CHAPPED LIPS
     Route: 061

REACTIONS (3)
  - Lip swelling [None]
  - Lip exfoliation [None]
  - Lip pain [None]

NARRATIVE: CASE EVENT DATE: 20190327
